FAERS Safety Report 15074690 (Version 1)
Quarter: 2018Q2

REPORT INFORMATION
  Report Type: Report from Study
  Country: US (occurrence: US)
  Receive Date: 20180627
  Receipt Date: 20180627
  Transmission Date: 20180711
  Serious: Yes (Other)
  Sender: FDA-Public Use
  Company Number: US-SAOL THERAPEUTICS-2017SAO01162

PATIENT
  Age: 66 Year
  Sex: Female

DRUGS (6)
  1. HYDROMORPHONE [Suspect]
     Active Substance: HYDROMORPHONE
     Dosage: 10.760 MG, \DAY
     Route: 037
     Dates: start: 20121217
  2. BUPIVACAINE. [Suspect]
     Active Substance: BUPIVACAINE
     Dosage: 21.519 MG, \DAY
     Route: 037
     Dates: start: 20121217
  3. COMPOUNDED BACLOFEN [Suspect]
     Active Substance: BACLOFEN
     Dosage: 35.866 ?G, \DAY
     Route: 037
     Dates: start: 20121217
  4. HYDROMORPHONE [Suspect]
     Active Substance: HYDROMORPHONE
     Dosage: 9.515 MG, \DAY
     Route: 037
     Dates: start: 20121217
  5. COMPOUNDED BACLOFEN [Suspect]
     Active Substance: BACLOFEN
     Dosage: 31.718 ?G, \DAY
     Route: 037
     Dates: start: 20121217
  6. BUPIVACAINE. [Suspect]
     Active Substance: BUPIVACAINE
     Dosage: 19.031 MG, \DAY
     Route: 037
     Dates: start: 20121217, end: 20121213

REACTIONS (4)
  - Catheter site erosion [Unknown]
  - Implant site pain [Recovered/Resolved]
  - Weight decreased [Unknown]
  - Incision site pain [Unknown]

NARRATIVE: CASE EVENT DATE: 2013
